FAERS Safety Report 8265857-5 (Version None)
Quarter: 2012Q2

REPORT INFORMATION
  Report Type: 
  Country: None (occurrence: None)
  Receive Date: 20120406
  Receipt Date: 20120329
  Transmission Date: 20120825
  Serious: Yes (Other)
  Sender: FDA-Public Use
  Company Number: US-GLAXOSMITHKLINE-A0972371A

PATIENT
  Age: 72 Year
  Sex: Male

DRUGS (16)
  1. IRON [Concomitant]
  2. PRILOSEC [Concomitant]
     Dosage: 20MG PER DAY
  3. CALCIUM CITRATE + CHOLECALCIFEROL [Concomitant]
  4. ASPIRIN [Concomitant]
     Dosage: 81MG PER DAY
  5. TYLENOL ARTHRITIS [Concomitant]
     Dosage: 2TAB AS REQUIRED
  6. AZATHIOPRINE [Concomitant]
     Dosage: 150MG PER DAY
  7. IMODIUM [Concomitant]
     Dosage: 2MG AS REQUIRED
  8. COUMADIN [Concomitant]
     Dosage: 5MG PER DAY
  9. FUROSEMIDE [Concomitant]
  10. NEURONTIN [Concomitant]
     Dosage: 100MG THREE TIMES PER DAY
  11. BACTRIM DS [Concomitant]
  12. FLOLAN [Suspect]
     Indication: PULMONARY ARTERIAL HYPERTENSION
     Dosage: 45.12NGKM SEE DOSAGE TEXT
     Route: 042
     Dates: start: 20060112
  13. SPIRIVA [Concomitant]
  14. SPIRONOLACTONE [Concomitant]
     Dosage: 25MG PER DAY
  15. SYNTHROID [Concomitant]
     Dosage: 175MCG PER DAY
  16. PREDNISONE [Concomitant]
     Dosage: 10MG PER DAY

REACTIONS (4)
  - HAEMORRHAGE [None]
  - HAEMATOCHEZIA [None]
  - FAECES DISCOLOURED [None]
  - HAEMOGLOBIN DECREASED [None]
